FAERS Safety Report 24020499 (Version 1)
Quarter: 2024Q2

REPORT INFORMATION
  Report Type: Spontaneous
  Country: CN (occurrence: CN)
  Receive Date: 20240627
  Receipt Date: 20240627
  Transmission Date: 20240716
  Serious: Yes (Hospitalization)
  Sender: FDA-Public Use
  Company Number: CN-SHANGHAI JUNSHI BIOSCIENCES CO., LTD.-CN2024010368

PATIENT

DRUGS (3)
  1. TORIPALIMAB [Suspect]
     Active Substance: TORIPALIMAB
     Indication: Nasopharyngeal cancer
     Dosage: 240 MG
     Route: 041
     Dates: start: 20240426, end: 20240426
  2. PACLITAXEL [Suspect]
     Active Substance: PACLITAXEL
     Indication: Nasopharyngeal cancer
     Dosage: 180 MG
     Route: 041
     Dates: start: 20240426, end: 20240426
  3. CISPLATIN [Suspect]
     Active Substance: CISPLATIN
     Indication: Nasopharyngeal cancer
     Dosage: 35 MG, QD
     Route: 041
     Dates: start: 20240426, end: 20240428

REACTIONS (1)
  - Myelosuppression [Recovering/Resolving]

NARRATIVE: CASE EVENT DATE: 20240504
